FAERS Safety Report 5009952-2 (Version None)
Quarter: 2006Q2

REPORT INFORMATION
  Report Type: 
  Country: None (occurrence: None)
  Receive Date: 20060522
  Receipt Date: 20060428
  Transmission Date: 20061013
  Serious: Yes (Life-Threatening, Hospitalization, Other)
  Sender: FDA-Public Use
  Company Number: 2006000553

PATIENT
  Sex: Male
  Weight: 2.5 kg

DRUGS (4)
  1. ATARAX [Suspect]
     Indication: ILL-DEFINED DISORDER
     Dosage: PLACENTAL
     Dates: start: 20051208, end: 20051208
  2. UTEMEC (RITODRINE HYDROCHLORIDE) [Concomitant]
  3. SOSEGON (PENTAZOCINE) [Concomitant]
  4. ANHIBA (PARACETAMOL) [Concomitant]

REACTIONS (5)
  - CAESAREAN SECTION [None]
  - DRUG EXPOSURE DURING PREGNANCY [None]
  - FOETAL DISTRESS SYNDROME [None]
  - PERSISTENT FOETAL CIRCULATION [None]
  - PREMATURE RUPTURE OF MEMBRANES [None]
